FAERS Safety Report 25419571 (Version 2)
Quarter: 2025Q2

REPORT INFORMATION
  Report Type: Report from Study
  Country: GT (occurrence: GT)
  Receive Date: 20250610
  Receipt Date: 20250620
  Transmission Date: 20250716
  Serious: Yes (Death)
  Sender: ALEXION PHARMACEUTICALS
  Company Number: GT-AstraZeneca-CH-00887406A

PATIENT
  Age: 73 Year

DRUGS (2)
  1. DURVALUMAB [Suspect]
     Active Substance: DURVALUMAB
     Indication: Bile duct cancer
     Dosage: 1500 MILLIGRAM, Q4W
  2. DURVALUMAB [Suspect]
     Active Substance: DURVALUMAB
     Indication: Hepatic cancer

REACTIONS (7)
  - Nausea [Fatal]
  - Diarrhoea [Fatal]
  - Decreased appetite [Fatal]
  - Decreased activity [Fatal]
  - Condition aggravated [Fatal]
  - Drug ineffective [Fatal]
  - Death [Fatal]
